FAERS Safety Report 9354542 (Version 2)
Quarter: 2013Q3

REPORT INFORMATION
  Report Type: Spontaneous
  Country: FI (occurrence: FI)
  Receive Date: 20130618
  Receipt Date: 20130923
  Transmission Date: 20140515
  Serious: Yes (Hospitalization, Other)
  Sender: FDA-Public Use
  Company Number: FI-ASTRAZENECA-2013SE42723

PATIENT
  Age: 34 Year
  Sex: Female

DRUGS (10)
  1. SEROQUEL PROLONG [Suspect]
     Indication: BIPOLAR DISORDER
     Route: 048
  2. SEROQUEL PROLONG [Suspect]
     Indication: BIPOLAR DISORDER
     Route: 048
  3. SEROQUEL PROLONG [Suspect]
     Indication: BIPOLAR DISORDER
     Route: 048
  4. ABILIFY [Concomitant]
  5. SERTRALIN [Concomitant]
  6. CIRCADIN [Concomitant]
  7. CERAZETTE [Concomitant]
  8. TRIPTYL [Concomitant]
  9. ?DEMIN [Concomitant]
  10. MELATONINE [Concomitant]

REACTIONS (2)
  - Intracranial pressure increased [Unknown]
  - Weight increased [Unknown]
